FAERS Safety Report 7032146-6 (Version None)
Quarter: 2010Q4

REPORT INFORMATION
  Report Type: 
  Country: None (occurrence: None)
  Receive Date: 20101007
  Receipt Date: 20100930
  Transmission Date: 20110411
  Serious: Yes (Disabling, Other)
  Sender: FDA-Public Use
  Company Number: US-ABBOTT-09P-163-0595620-00

PATIENT
  Sex: Male
  Weight: 83.2 kg

DRUGS (23)
  1. HUMIRA [Suspect]
     Indication: RHEUMATOID ARTHRITIS
     Route: 058
  2. HUMIRA [Suspect]
  3. CELEBREX [Concomitant]
     Indication: PRODUCT USED FOR UNKNOWN INDICATION
  4. FLONASE [Concomitant]
     Indication: PRODUCT USED FOR UNKNOWN INDICATION
  5. CHANTIX [Concomitant]
     Indication: PRODUCT USED FOR UNKNOWN INDICATION
     Dates: start: 20080812
  6. PERCODAN-DEMI [Concomitant]
     Indication: PRODUCT USED FOR UNKNOWN INDICATION
     Dosage: 325MG-4.5MG-0.38MG
     Route: 048
     Dates: start: 20080825
  7. FOLIC ACID [Concomitant]
     Indication: VITAMIN SUPPLEMENTATION
     Route: 048
     Dates: start: 20080813
  8. METHOTREXATE [Concomitant]
     Indication: PRODUCT USED FOR UNKNOWN INDICATION
     Route: 048
     Dates: start: 20080613
  9. PREDNISONE [Concomitant]
     Indication: PRODUCT USED FOR UNKNOWN INDICATION
     Route: 048
     Dates: start: 20080813
  10. PREDNISONE [Concomitant]
     Route: 048
  11. BETAMETHASONE VALERATE [Concomitant]
     Indication: PRODUCT USED FOR UNKNOWN INDICATION
  12. BUPROPION HCL [Concomitant]
     Indication: DEPRESSION
     Dosage: 1/2 TAB, BID FOR 1 WEEK, 1 TAB BID FOR 1 WEEK, 2 TABS BID DAILY , ADVANCE AS TOLERATED.
  13. ACETAMINOPHEN AND HYDROCODONE BITARTRATE [Concomitant]
     Indication: PAIN
     Dosage: LIMIT OF ACETAMINIOHEN TO 5/500MG EVERY 24HRS
  14. NICOTINE [Concomitant]
     Indication: EX-TOBACCO USER
  15. ETHAMBUTOL HYDROCHLORIDE [Concomitant]
     Indication: PRODUCT USED FOR UNKNOWN INDICATION
  16. RIFAMPIN [Concomitant]
     Indication: PRODUCT USED FOR UNKNOWN INDICATION
  17. AZITHROMYCIN [Concomitant]
     Indication: PRODUCT USED FOR UNKNOWN INDICATION
     Route: 048
  18. SIMVASTATIN [Concomitant]
     Indication: BLOOD CHOLESTEROL
     Route: 048
  19. INFLUENZA VACCINE [Concomitant]
     Indication: PRODUCT USED FOR UNKNOWN INDICATION
     Dates: start: 20091002, end: 20091002
  20. INFLUENZA VACCINE [Concomitant]
     Dates: start: 20081101, end: 20081101
  21. FLU H1N1 VACCINE [Concomitant]
     Indication: PRODUCT USED FOR UNKNOWN INDICATION
     Dates: start: 20091201, end: 20091201
  22. PNEUMO VAC [Concomitant]
     Indication: PRODUCT USED FOR UNKNOWN INDICATION
     Dates: start: 20090902, end: 20090902
  23. TD (ADULT) [Concomitant]
     Indication: PRODUCT USED FOR UNKNOWN INDICATION
     Dates: start: 20060601, end: 20060601

REACTIONS (16)
  - ABDOMINAL PAIN UPPER [None]
  - ARTHRITIS [None]
  - COUGH [None]
  - DEPRESSION [None]
  - DYSPNOEA EXERTIONAL [None]
  - FATIGUE [None]
  - IMPAIRED WORK ABILITY [None]
  - INSOMNIA [None]
  - LUNG DISORDER [None]
  - MYCOBACTERIUM AVIUM COMPLEX INFECTION [None]
  - NASOPHARYNGITIS [None]
  - OROPHARYNGEAL PAIN [None]
  - OTITIS EXTERNA [None]
  - PLEURAL EFFUSION [None]
  - PULMONARY OEDEMA [None]
  - TUBERCULOSIS [None]
